FAERS Safety Report 9061338 (Version 1)
Quarter: 2013Q1

REPORT INFORMATION
  Report Type: Spontaneous
  Country: PL (occurrence: PL)
  Receive Date: 20130204
  Receipt Date: 20130204
  Transmission Date: 20140127
  Serious: Yes (Hospitalization, Other)
  Sender: FDA-Public Use
  Company Number: PL-ASTELLAS-2013EU000872

PATIENT
  Age: 30 Year
  Sex: Male

DRUGS (13)
  1. TACROLIMUS SYSTEMIC [Suspect]
     Indication: TRANSPLANT
     Dosage: 5 MG, UNKNOWN/D
     Route: 048
  2. TACROLIMUS SYSTEMIC [Suspect]
     Dosage: 5 MG, BID
     Route: 048
  3. TACROLIMUS SYSTEMIC [Suspect]
     Dosage: UNK
  4. TACROLIMUS OINTMENT [Suspect]
     Indication: GRAFT VERSUS HOST DISEASE
     Dosage: UNK
     Route: 061
  5. MYCOPHENOLATE MOFETIL [Concomitant]
     Indication: TRANSPLANT
     Dosage: 2 G, UNKNOWN/D
     Route: 048
  6. MYCOPHENOLATE MOFETIL [Concomitant]
     Dosage: 1 G, BID
     Route: 048
  7. MYCOPHENOLATE MOFETIL [Concomitant]
     Dosage: 1 G, UNKNOWN/D
     Route: 048
  8. MYCOPHENOLATE MOFETIL [Concomitant]
     Dosage: 2 G, UNKNOWN/D
     Route: 048
  9. BASILIXIMAB [Concomitant]
     Indication: TRANSPLANT
     Dosage: 1 DF, UNKNOWN/D
     Route: 042
  10. BASILIXIMAB [Concomitant]
     Dosage: UNK
     Route: 042
  11. METHYLPREDNISOLONE [Concomitant]
     Indication: TRANSPLANT
     Dosage: 1 G, UNKNOWN/D
     Route: 042
  12. METHYLPREDNISOLONE [Concomitant]
     Dosage: 0.5 G, UNKNOWN/D
     Route: 042
  13. PREDNISOLONE [Concomitant]
     Indication: TRANSPLANT
     Dosage: 5 MG, UNKNOWN/D
     Route: 065

REACTIONS (5)
  - Off label use [Unknown]
  - Off label use [Unknown]
  - Cytomegalovirus infection [Unknown]
  - Transplant rejection [Unknown]
  - Metabolic disorder [Unknown]
